FAERS Safety Report 9366740 (Version 2)
Quarter: 2013Q3

REPORT INFORMATION
  Report Type: Spontaneous
  Country: BR (occurrence: BR)
  Receive Date: 20130625
  Receipt Date: 20130719
  Transmission Date: 20140515
  Serious: Yes (Death)
  Sender: FDA-Public Use
  Company Number: BR-NAPPMUNDI-GBR-2013-0014651

PATIENT
  Age: 36 Year
  Sex: Female

DRUGS (1)
  1. OXYCONTIN TABLETS [Suspect]
     Indication: PRODUCT USED FOR UNKNOWN INDICATION
     Dosage: UNK
     Route: 048

REACTIONS (1)
  - Death [Fatal]
